FAERS Safety Report 22600999 (Version 1)
Quarter: 2023Q2

REPORT INFORMATION
  Report Type: Spontaneous
  Country: DE (occurrence: DE)
  Receive Date: 20230614
  Receipt Date: 20230614
  Transmission Date: 20230722
  Serious: Yes (Other)
  Sender: FDA-Public Use
  Company Number: DE-AstraZeneca-2023A118893

PATIENT
  Sex: Male

DRUGS (1)
  1. CANDESARTAN CILEXETIL\HYDROCHLOROTHIAZIDE [Suspect]
     Active Substance: CANDESARTAN CILEXETIL\HYDROCHLOROTHIAZIDE
     Indication: Product used for unknown indication
     Dosage: UNK
     Route: 048

REACTIONS (15)
  - Cardiovascular disorder [Unknown]
  - Dry mouth [Unknown]
  - Urine abnormality [Unknown]
  - Micturition urgency [Unknown]
  - Tremor [Unknown]
  - Mental disorder [Unknown]
  - Renal cyst [Unknown]
  - Confusional state [Unknown]
  - Feeling abnormal [Unknown]
  - Night sweats [Unknown]
  - Anxiety disorder [Unknown]
  - Skin odour abnormal [Unknown]
  - Weight decreased [Unknown]
  - Fatigue [Unknown]
  - Decreased appetite [Unknown]
